FAERS Safety Report 18529929 (Version 1)
Quarter: 2020Q4

REPORT INFORMATION
  Report Type: Spontaneous
  Country: US (occurrence: US)
  Receive Date: 20201120
  Receipt Date: 20201120
  Transmission Date: 20210114
  Serious: Yes (Other)
  Sender: FDA-Public Use
  Company Number: US-NOVOPROD-691255

PATIENT
  Sex: Female

DRUGS (2)
  1. LANTUS [Suspect]
     Active Substance: INSULIN GLARGINE
     Indication: DIABETES MELLITUS
     Dosage: 6 IU (6 UNITS)
     Route: 065
     Dates: start: 1993
  2. NOVOLOG [Suspect]
     Active Substance: INSULIN ASPART
     Indication: DIABETES MELLITUS
     Dosage: 2 IU (2 UNITS WITH MEALS)
     Route: 058
     Dates: start: 1993

REACTIONS (5)
  - Blood glucose increased [Unknown]
  - Vitiligo [Unknown]
  - Varicose vein [Unknown]
  - Blood glucose decreased [Unknown]
  - Blood glucose decreased [Recovered/Resolved]

NARRATIVE: CASE EVENT DATE: 2003
